FAERS Safety Report 24380314 (Version 2)
Quarter: 2024Q4

REPORT INFORMATION
  Report Type: Spontaneous
  Country: IT (occurrence: IT)
  Receive Date: 20240930
  Receipt Date: 20241010
  Transmission Date: 20250114
  Serious: Yes (Other)
  Sender: SANOFI AVENTIS
  Company Number: None

PATIENT
  Age: 42 Year
  Sex: Female

DRUGS (7)
  1. PREDNISONE [Suspect]
     Active Substance: PREDNISONE
     Indication: Immune thrombocytopenia
     Dosage: UNK, AGAIN RESTARTED
     Dates: start: 201106
  2. PREDNISONE [Suspect]
     Active Substance: PREDNISONE
     Dosage: UNK, RESTARTED AT LOWEST EFFECTIVE DOSAGE (25-30 MG/DAY)
     Dates: end: 2006
  3. PREDNISONE [Suspect]
     Active Substance: PREDNISONE
     Dosage: UNK, TAPERED UNTIL SUSPENSION
  4. PREDNISONE [Suspect]
     Active Substance: PREDNISONE
     Dosage: 1 MG/KG, QD
  5. CYCLOSPORINE [Suspect]
     Active Substance: CYCLOSPORINE
     Indication: Immune thrombocytopenia
     Dosage: 200 MG, QD
     Dates: start: 2006, end: 201106
  6. IMMUNE GLOBULIN NOS [Concomitant]
     Active Substance: IMMUNE GLOBULIN NOS
     Indication: Immune thrombocytopenia
     Dosage: UNK
     Route: 041
     Dates: start: 2021
  7. ENOXAPARIN SODIUM [Concomitant]
     Active Substance: ENOXAPARIN SODIUM
     Indication: Thrombosis prophylaxis
     Dosage: UNK
     Dates: start: 202111

REACTIONS (3)
  - Immune thrombocytopenia [Unknown]
  - Rebound effect [Unknown]
  - Pneumonia [Unknown]
